FAERS Safety Report 18611546 (Version 1)
Quarter: 2020Q4

REPORT INFORMATION
  Report Type: Spontaneous
  Country: IN (occurrence: IN)
  Receive Date: 20201214
  Receipt Date: 20201214
  Transmission Date: 20210114
  Serious: No
  Sender: FDA-Public Use
  Company Number: IN-LUPIN LIMITED-2020-06164

PATIENT
  Age: 45 Year
  Sex: Female

DRUGS (2)
  1. IMATINIB MESYLATE. [Suspect]
     Active Substance: IMATINIB MESYLATE
     Indication: NEUROFIBROMA
     Dosage: 400 MILLIGRAM, BID
     Route: 048
  2. IMATINIB MESYLATE. [Suspect]
     Active Substance: IMATINIB MESYLATE
     Dosage: 400 MILLIGRAM, QD
     Route: 048

REACTIONS (3)
  - Swelling face [Recovered/Resolved]
  - Decreased appetite [Unknown]
  - Oedema peripheral [Recovered/Resolved]
